FAERS Safety Report 14205024 (Version 1)
Quarter: 2017Q4

REPORT INFORMATION
  Report Type: Spontaneous
  Country: US (occurrence: US)
  Receive Date: 20171119
  Receipt Date: 20171119
  Transmission Date: 20180321
  Serious: Yes (Life-Threatening, Other)
  Sender: FDA-Public Use
  Company Number: None

PATIENT
  Age: 16 Month
  Sex: Male
  Weight: 9.45 kg

DRUGS (4)
  1. POLY VI SOL [Concomitant]
  2. AFRIN NO DRIP ORIGINAL PUMP MIST [Suspect]
     Active Substance: OXYMETAZOLINE HYDROCHLORIDE
     Indication: PULMONARY CONGESTION
     Dosage: QUANTITY:1 SPRAY(S);OTHER ROUTE:SPRAYED IN NOSTRILS?
     Route: 045
     Dates: start: 20171117, end: 20171119
  3. OXYGEN. [Concomitant]
     Active Substance: OXYGEN
  4. LACTOSE [Concomitant]
     Active Substance: LACTOSE

REACTIONS (5)
  - Heart rate increased [None]
  - Restlessness [None]
  - Drug ineffective [None]
  - Condition aggravated [None]
  - Oxygen saturation decreased [None]

NARRATIVE: CASE EVENT DATE: 20171118
